FAERS Safety Report 25190748 (Version 1)
Quarter: 2025Q2

REPORT INFORMATION
  Report Type: Spontaneous
  Country: US (occurrence: US)
  Receive Date: 20250411
  Receipt Date: 20250411
  Transmission Date: 20250716
  Serious: No
  Sender: Fortrea
  Company Number: US-THERACOSBIO, LLC-THR-US-2025-000001

PATIENT

DRUGS (2)
  1. BRENZAVVY [Suspect]
     Active Substance: BEXAGLIFLOZIN
     Indication: Type 2 diabetes mellitus
     Dosage: 20 MILLIGRAM, QD
     Route: 048
     Dates: start: 202410, end: 20250215
  2. LISINOPRIL [Concomitant]
     Active Substance: LISINOPRIL
     Indication: Blood pressure abnormal
     Dosage: UNK, QD STARTED FOR COUPLE OF YEARS

REACTIONS (6)
  - Pruritus [Recovered/Resolved]
  - Erythema [Recovered/Resolved]
  - Peripheral coldness [Recovered/Resolved]
  - Skin warm [Recovered/Resolved]
  - Pallor [Recovered/Resolved]
  - Intentional dose omission [Unknown]

NARRATIVE: CASE EVENT DATE: 20250210
